FAERS Safety Report 18026072 (Version 1)
Quarter: 2020Q3

REPORT INFORMATION
  Report Type: Report from Study
  Country: DE (occurrence: DE)
  Receive Date: 20200715
  Receipt Date: 20200715
  Transmission Date: 20201103
  Serious: Yes (Other)
  Sender: FDA-Public Use
  Company Number: DE-NEUROCRINE BIOSCIENCES INC.-2020NBI02118

PATIENT
  Age: 87 Year
  Sex: Male

DRUGS (9)
  1. ESOMEPRAZOLE. [Concomitant]
     Active Substance: ESOMEPRAZOLE MAGNESIUM
     Indication: GASTROOESOPHAGEAL REFLUX DISEASE
     Dosage: UNKNOWN
     Route: 065
  2. LEVODOPA/BENSERAZIDE [Concomitant]
     Active Substance: BENSERAZIDE\LEVODOPA
     Route: 065
     Dates: start: 20200525
  3. FUROSEMIDE. [Concomitant]
     Active Substance: FUROSEMIDE
     Indication: ARRHYTHMIA
     Dosage: UNKNOWN
     Route: 065
  4. GINGIUM [Concomitant]
     Active Substance: GINKGO
     Indication: DEMENTIA
     Route: 065
     Dates: start: 2019
  5. LEVODOPA/BENSERAZIDE [Concomitant]
     Active Substance: BENSERAZIDE\LEVODOPA
     Indication: PARKINSON^S DISEASE
     Route: 065
     Dates: start: 20200427, end: 20200524
  6. MAGNESIUM VERLA [MAGNESIUM] [Concomitant]
     Indication: MINERAL SUPPLEMENTATION
     Dosage: UNKNOWN
     Route: 065
  7. VIGANTOL [COLECALCIFEROL] [Concomitant]
     Active Substance: CHOLECALCIFEROL
     Indication: VITAMIN SUPPLEMENTATION
     Dosage: UNKNOWN
     Route: 065
  8. OPICAPONE [Suspect]
     Active Substance: OPICAPONE
     Indication: PARKINSON^S DISEASE
     Route: 065
     Dates: start: 20200428
  9. ASPIRIN. [Concomitant]
     Active Substance: ASPIRIN
     Indication: ARRHYTHMIA
     Route: 065

REACTIONS (1)
  - Parkinson^s disease [Not Recovered/Not Resolved]

NARRATIVE: CASE EVENT DATE: 20200511
